FAERS Safety Report 19884819 (Version 1)
Quarter: 2021Q3

REPORT INFORMATION
  Report Type: Spontaneous
  Country: US (occurrence: US)
  Receive Date: 20210924
  Receipt Date: 20210924
  Transmission Date: 20211014
  Serious: No
  Sender: FDA-Public Use
  Company Number: None

PATIENT
  Age: 47 Year
  Sex: Male

DRUGS (1)
  1. HUMIRA [Suspect]
     Active Substance: ADALIMUMAB
     Indication: CROHN^S DISEASE
     Dosage: OTHER
     Route: 058
     Dates: start: 202103

REACTIONS (4)
  - Weight increased [None]
  - Pain [None]
  - Fatigue [None]
  - Cholelithiasis [None]

NARRATIVE: CASE EVENT DATE: 20210924
